FAERS Safety Report 7823645-5 (Version None)
Quarter: 2011Q4

REPORT INFORMATION
  Report Type: 
  Country: None (occurrence: None)
  Receive Date: 20111019
  Receipt Date: 20111019
  Transmission Date: 20120403
  Serious: No
  Sender: FDA-Public Use
  Company Number: None

PATIENT
  Age: 56 Year
  Sex: Male
  Weight: 79.378 kg

DRUGS (1)
  1. ENBREL [Suspect]
     Indication: ANKYLOSING SPONDYLITIS
     Dosage: 50 MG/ML
     Route: 058

REACTIONS (4)
  - DEVICE MALFUNCTION [None]
  - PRODUCT QUALITY ISSUE [None]
  - INCORRECT DOSE ADMINISTERED BY DEVICE [None]
  - DEVICE FAILURE [None]
